FAERS Safety Report 6340771-0 (Version None)
Quarter: 2009Q3

REPORT INFORMATION
  Report Type: 
  Country: None (occurrence: None)
  Receive Date: 20090904
  Receipt Date: 20090826
  Transmission Date: 20100115
  Serious: Yes (Life-Threatening, Other)
  Sender: FDA-Public Use
  Company Number: PR-BAYER-200931124NA

PATIENT
  Age: 35 Year
  Sex: Female

DRUGS (1)
  1. AVELOX [Suspect]
     Indication: OROPHARYNGEAL PAIN
     Dosage: TOTAL DAILY DOSE: 400 MG  UNIT DOSE: 400 MG
     Dates: start: 20071101, end: 20071101

REACTIONS (6)
  - ALOPECIA [None]
  - BLINDNESS [None]
  - ONYCHOMADESIS [None]
  - SKIN LESION [None]
  - STEVENS-JOHNSON SYNDROME [None]
  - VISION BLURRED [None]
